FAERS Safety Report 8086399-6 (Version None)
Quarter: 2012Q1

REPORT INFORMATION
  Report Type: 
  Country: None (occurrence: None)
  Receive Date: 20120128
  Receipt Date: 20110511
  Transmission Date: 20120608
  Serious: No
  Sender: FDA-Public Use
  Company Number: US-ABBOTT-11P-163-0724697-00

PATIENT
  Sex: Female
  Weight: 62.652 kg

DRUGS (15)
  1. METFFORMIN HYDROCHLORIDE [Concomitant]
     Indication: DIABETES MELLITUS
  2. AMARYL [Concomitant]
     Indication: DIABETES MELLITUS
  3. CIPROFLOXACIN [Suspect]
     Indication: CYSTITIS
     Dates: start: 20110401, end: 20110401
  4. BALSALAZIDE DISODIUM [Concomitant]
     Indication: CROHN'S DISEASE
     Route: 048
  5. LEVETIRACETAM [Concomitant]
     Indication: PRODUCT USED FOR UNKNOWN INDICATION
     Dosage: 1 - 250 MG TAB QAM AND TWO QHS
  6. HUMIRA [Suspect]
     Indication: CROHN'S DISEASE
     Route: 058
     Dates: start: 20101101
  7. WELCHOL [Concomitant]
     Indication: PRURITUS
  8. WELCHOL [Concomitant]
     Indication: BLOOD CHOLESTEROL
  9. ROPINIROLE [Concomitant]
     Indication: RESTLESS LEGS SYNDROME
     Dosage: QHS
     Route: 048
  10. PROPRANOLOL [Concomitant]
     Indication: PRODUCT USED FOR UNKNOWN INDICATION
  11. NITROFURANTOIN [Suspect]
     Indication: URINARY TRACT INFECTION
     Dates: end: 20110401
  12. AMLODIPINE [Concomitant]
     Indication: BLOOD PRESSURE
     Dosage: 10 MG QAM
  13. LEVOTHYROXINE SODIUM [Concomitant]
     Indication: THYROID DISORDER
  14. NITROFURANTOIN [Suspect]
     Indication: PROPHYLAXIS
  15. AVALIDE [Concomitant]
     Indication: BLOOD PRESSURE
     Dosage: 1 - 300/25 MG EVERY MORNING

REACTIONS (2)
  - CYSTITIS [None]
  - PRURITUS [None]
